FAERS Safety Report 6545231-X (Version None)
Quarter: 2010Q1

REPORT INFORMATION
  Report Type: 
  Country: None (occurrence: None)
  Receive Date: 20100115
  Receipt Date: 20100105
  Transmission Date: 20100710
  Serious: Yes (Other)
  Sender: FDA-Public Use
  Company Number: TRP_06705_2010

PATIENT
  Sex: Female
  Weight: 64.8644 kg

DRUGS (9)
  1. INTERFERON [Suspect]
     Indication: HEPATITIS C
     Dosage: (DF
  2. RIBAVIRIN [Suspect]
     Indication: HEPATITIS C
     Dosage: (DF)
  3. INFERGEN [Suspect]
     Indication: HEPATITIS C
     Dosage: (15 UG QD  SUBCUTANEOUS)
     Route: 058
     Dates: start: 20091117
  4. RIBAVIRIN [Suspect]
     Indication: HEPATITIS C
     Dosage: 400 MG BID ORAL
     Route: 048
     Dates: start: 20091117
  5. SUDAFED 24 HOUR [Concomitant]
  6. LORATADINE [Concomitant]
  7. ZOLOFT [Concomitant]
  8. BIOTIN [Concomitant]
  9. AMBIEN [Concomitant]

REACTIONS (12)
  - ALOPECIA [None]
  - ASTHENIA [None]
  - DIZZINESS [None]
  - FEELING ABNORMAL [None]
  - HAEMATOCRIT DECREASED [None]
  - HAEMOGLOBIN DECREASED [None]
  - INSOMNIA [None]
  - MENTAL IMPAIRMENT [None]
  - PLATELET COUNT DECREASED [None]
  - RED BLOOD CELL COUNT DECREASED [None]
  - SOMNOLENCE [None]
  - WHITE BLOOD CELL COUNT DECREASED [None]
